FAERS Safety Report 9966461 (Version 2)
Quarter: 2014Q1

REPORT INFORMATION
  Report Type: Report from Study
  Country: US (occurrence: US)
  Receive Date: 20140305
  Receipt Date: 20140305
  Transmission Date: 20141002
  Serious: No
  Sender: FDA-Public Use
  Company Number: US-ABBVIE-13P-163-1105932-00

PATIENT
  Age: 60 Year
  Sex: Female

DRUGS (7)
  1. HUMIRA [Suspect]
     Indication: COLITIS ULCERATIVE
     Dates: start: 20130529
  2. AZASAN [Concomitant]
     Indication: COLITIS
  3. WELLBUTRIN [Concomitant]
     Indication: DEPRESSION
  4. TOPROL [Concomitant]
     Indication: BLOOD PRESSURE
  5. TOPROL [Concomitant]
     Indication: MYOCARDIAL INFARCTION
  6. SIMVASTATIN [Concomitant]
     Indication: BLOOD CHOLESTEROL INCREASED
     Dosage: QD
  7. NEXIUM [Concomitant]
     Indication: GASTROOESOPHAGEAL REFLUX DISEASE

REACTIONS (4)
  - Device malfunction [Recovered/Resolved]
  - Injection site pain [Recovered/Resolved]
  - Incorrect dose administered [Recovered/Resolved]
  - Injection site erythema [Recovered/Resolved]
